FAERS Safety Report 4800040-4 (Version None)
Quarter: 2005Q4

REPORT INFORMATION
  Report Type: 
  Country: None (occurrence: None)
  Receive Date: 20051017
  Receipt Date: 20051006
  Transmission Date: 20060501
  Serious: Yes (Hospitalization)
  Sender: FDA-Public Use
  Company Number: US-JNJFOC-20051001786

PATIENT
  Sex: Female

DRUGS (7)
  1. INFLIXIMAB [Suspect]
     Indication: RHEUMATOID ARTHRITIS
     Route: 042
  2. ALEVE [Concomitant]
  3. DARVON [Concomitant]
  4. FLEXERIL [Concomitant]
  5. LOPRESSOR [Concomitant]
  6. DIOVAN [Concomitant]
  7. CARDIZEM [Concomitant]

REACTIONS (2)
  - COLITIS ISCHAEMIC [None]
  - MIGRAINE [None]
